FAERS Safety Report 11769311 (Version 6)
Quarter: 2016Q1

REPORT INFORMATION
  Report Type: Report from Study
  Country: ES (occurrence: ES)
  Receive Date: 20151123
  Receipt Date: 20160222
  Transmission Date: 20160525
  Serious: Yes (Hospitalization, Disabling, Other)
  Sender: FDA-Public Use
  Company Number: ES-GILEAD-2015-0179812

PATIENT
  Age: 85 Year
  Sex: Female
  Weight: 57.9 kg

DRUGS (27)
  1. RITUXIMAB [Suspect]
     Active Substance: RITUXIMAB
     Dosage: 650 MG, Q1WK
     Route: 042
     Dates: start: 20150318, end: 20150318
  2. PARACETAMOL [Concomitant]
     Active Substance: ACETAMINOPHEN
     Dosage: UNK
     Route: 048
     Dates: start: 20150417
  3. IBUPROFEN. [Concomitant]
     Active Substance: IBUPROFEN
     Route: 048
     Dates: start: 20150417
  4. IRON [Concomitant]
     Active Substance: IRON
     Route: 048
     Dates: start: 20151015
  5. DOBUPAL [Concomitant]
     Active Substance: VENLAFAXINE HYDROCHLORIDE
     Route: 048
  6. RITUXIMAB [Suspect]
     Active Substance: RITUXIMAB
     Dosage: 650 MG, Q1WK
     Route: 042
     Dates: start: 20150311, end: 20150311
  7. RITUXIMAB [Suspect]
     Active Substance: RITUXIMAB
     Dosage: 650 MG, Q1WK
     Route: 042
     Dates: start: 20150325, end: 20150325
  8. RITUXIMAB [Suspect]
     Active Substance: RITUXIMAB
     Dosage: 650 MG, Q1WK
     Route: 042
     Dates: start: 20150415, end: 20150415
  9. RITUXIMAB [Suspect]
     Active Substance: RITUXIMAB
     Dosage: 650 MG, Q1WK
     Route: 042
     Dates: start: 20150429, end: 20150429
  10. TERTENSIF [Concomitant]
     Route: 048
  11. IDELALISIB [Suspect]
     Active Substance: IDELALISIB
     Dosage: 150 MG, BID
     Route: 048
     Dates: start: 20150304, end: 20150422
  12. RITUXIMAB [Suspect]
     Active Substance: RITUXIMAB
     Dosage: 650 MG, Q1WK
     Route: 042
     Dates: start: 20150401, end: 20150401
  13. BROMAZEPAM [Concomitant]
     Active Substance: BROMAZEPAM
     Route: 048
     Dates: start: 201506
  14. RITUXIMAB [Suspect]
     Active Substance: RITUXIMAB
     Dosage: 650 MG, Q1WK
     Route: 042
     Dates: start: 20150408, end: 20150408
  15. RITUXIMAB [Suspect]
     Active Substance: RITUXIMAB
     Dosage: UNK
     Route: 042
  16. OMEPRAZOLE. [Concomitant]
     Active Substance: OMEPRAZOLE
     Dosage: UNK
     Route: 048
  17. OMEPRAZOLE. [Concomitant]
     Active Substance: OMEPRAZOLE
     Route: 048
  18. IDELALISIB [Suspect]
     Active Substance: IDELALISIB
     Dosage: 150 MG, BID
     Route: 048
     Dates: start: 20151217
  19. RITUXIMAB [Suspect]
     Active Substance: RITUXIMAB
     Indication: CHRONIC LYMPHOCYTIC LEUKAEMIA
     Dosage: 650 MG, Q1WK
     Route: 042
     Dates: start: 20150304, end: 20150305
  20. AGOMELATINE [Concomitant]
     Active Substance: AGOMELATINE
     Dosage: UNK
     Route: 048
  21. ALMAGATE [Concomitant]
     Active Substance: ALMAGATE
     Route: 048
     Dates: start: 20150914
  22. OMEPRAZOLE. [Concomitant]
     Active Substance: OMEPRAZOLE
     Route: 048
  23. IDELALISIB [Suspect]
     Active Substance: IDELALISIB
     Indication: CHRONIC LYMPHOCYTIC LEUKAEMIA
     Dosage: 150 MG, BID
     Route: 048
     Dates: start: 20150429, end: 20151114
  24. SIMVASTATIN. [Concomitant]
     Active Substance: SIMVASTATIN
     Route: 048
  25. EPOETIN [Concomitant]
     Active Substance: ERYTHROPOIETIN
     Dosage: UNK
     Route: 058
     Dates: start: 20150820, end: 20151015
  26. OMEPRAZOLE. [Concomitant]
     Active Substance: OMEPRAZOLE
     Route: 048
  27. LORAZEPAM. [Concomitant]
     Active Substance: LORAZEPAM
     Route: 048

REACTIONS (7)
  - Oral candidiasis [Not Recovered/Not Resolved]
  - Glossitis [Recovered/Resolved]
  - Psoriasis [Not Recovered/Not Resolved]
  - Agranulocytosis [Recovered/Resolved]
  - Conjunctivitis [Recovered/Resolved]
  - Oral mucosal eruption [Recovered/Resolved]
  - Gastrointestinal haemorrhage [Recovered/Resolved]

NARRATIVE: CASE EVENT DATE: 20151028
